FAERS Safety Report 11691139 (Version 3)
Quarter: 2016Q1

REPORT INFORMATION
  Report Type: Spontaneous
  Country: DE (occurrence: DE)
  Receive Date: 20151102
  Receipt Date: 20160209
  Transmission Date: 20160525
  Serious: Yes (Hospitalization, Disabling, Other)
  Sender: FDA-Public Use
  Company Number: PHHY2015DE141930

PATIENT
  Age: 76 Year
  Sex: Female
  Weight: 48.2 kg

DRUGS (3)
  1. EXJADE [Suspect]
     Active Substance: DEFERASIROX
     Indication: MYELODYSPLASTIC SYNDROME
     Dosage: UNK
     Route: 065
     Dates: start: 2011
  2. ACC [Concomitant]
     Active Substance: ACETYLCYSTEINE
     Indication: PRODUCT USED FOR UNKNOWN INDICATION
     Dosage: 600 MG, QD
     Route: 065
  3. OXYGEN. [Concomitant]
     Active Substance: OXYGEN
     Indication: PRODUCT USED FOR UNKNOWN INDICATION
     Dosage: 1 L, (PER MIN)
     Route: 065

REACTIONS (16)
  - Dizziness [Unknown]
  - Night sweats [Unknown]
  - Neutrophil toxic granulation present [Unknown]
  - Band neutrophil count increased [Unknown]
  - Weight decreased [Unknown]
  - Pulmonary fibrosis [Unknown]
  - Nutritional condition abnormal [Unknown]
  - Mydriasis [Unknown]
  - Interstitial lung disease [Not Recovered/Not Resolved]
  - Platelet count decreased [Unknown]
  - Body temperature decreased [Unknown]
  - Pneumothorax [Unknown]
  - Anisocytosis [Unknown]
  - Tongue dry [Unknown]
  - Blood lactate dehydrogenase increased [Unknown]
  - General physical health deterioration [Unknown]

NARRATIVE: CASE EVENT DATE: 201110
